FAERS Safety Report 4511307-1 (Version None)
Quarter: 2004Q4

REPORT INFORMATION
  Report Type: 
  Country: None (occurrence: None)
  Receive Date: 20041129
  Receipt Date: 20041015
  Transmission Date: 20050328
  Serious: Yes (Hospitalization)
  Sender: FDA-Public Use
  Company Number: FR-BRISTOL-MYERS SQUIBB COMPANY-12732111

PATIENT
  Age: 91 Year
  Sex: Female
  Weight: 64 kg

DRUGS (5)
  1. APROVEL [Suspect]
     Indication: HYPERTENSION
     Route: 048
     Dates: end: 20040429
  2. DILTIAZEM HCL [Suspect]
     Indication: HYPERTENSION
     Route: 048
     Dates: end: 20040429
  3. LASILIX [Suspect]
     Indication: HYPERTENSION
     Route: 048
     Dates: end: 20040429
  4. HYPERIUM [Suspect]
     Indication: HYPERTENSION
     Dosage: DURATION=LONG TIME; 1 MG DAILY UNTIL 29-MAR-2004; DOSE WAS INCREASED 3/30/04 D/T HYPERTN THRUSTS
     Route: 048
     Dates: end: 20040429
  5. ALDALIX [Suspect]
     Indication: HYPERTENSION
     Route: 048
     Dates: end: 20040429

REACTIONS (3)
  - COGNITIVE DISORDER [None]
  - HYPERTENSION [None]
  - HYPONATRAEMIA [None]
